FAERS Safety Report 8729503 (Version 2)
Quarter: 2012Q4

REPORT INFORMATION
  Report Type: Report from Study
  Country: US (occurrence: US)
  Receive Date: 20120817
  Receipt Date: 20120831
  Transmission Date: 20130627
  Serious: Yes (Hospitalization, Other)
  Sender: FDA-Public Use
  Company Number: US-ABBOTT-12P-163-0966731-00

PATIENT
  Age: 49 None
  Sex: Female
  Weight: 74.91 kg

DRUGS (10)
  1. HUMIRA 40 MG/0.8 ML PEN [Suspect]
     Indication: ANKYLOSING SPONDYLITIS
     Dates: start: 20110915
  2. HUMIRA 40 MG/0.8 ML PEN [Suspect]
     Indication: RHEUMATOID ARTHRITIS
     Dates: start: 201201
  3. TAMOXIFEN CITRATE [Suspect]
     Indication: BREAST HYPERPLASIA
     Dates: start: 200707, end: 20120326
  4. TRAMADOL [Concomitant]
     Indication: PAIN
  5. TYLENOL [Concomitant]
     Indication: PAIN
  6. CALTRATE [Concomitant]
     Indication: MINERAL SUPPLEMENTATION
  7. VITAMIN D [Concomitant]
     Indication: VITAMIN SUPPLEMENTATION
  8. EVOXAC [Concomitant]
     Indication: DRY MOUTH
  9. NEOMYSIN MOUTH WASH [Concomitant]
     Indication: DRY MOUTH
  10. PENNSAID [Concomitant]
     Indication: MYALGIA
     Route: 061

REACTIONS (22)
  - Chest discomfort [Not Recovered/Not Resolved]
  - Benign breast neoplasm [Not Recovered/Not Resolved]
  - Pulmonary embolism [Recovered/Resolved]
  - Deep vein thrombosis [Recovered/Resolved]
  - Abdominal pain [Recovered/Resolved]
  - Dyspnoea [Not Recovered/Not Resolved]
  - Pallor [Recovered/Resolved]
  - Arthralgia [Not Recovered/Not Resolved]
  - Joint stiffness [Not Recovered/Not Resolved]
  - Gastrointestinal ulcer [Not Recovered/Not Resolved]
  - Musculoskeletal stiffness [Not Recovered/Not Resolved]
  - Chest pain [Recovered/Resolved]
  - Anxiety [Recovered/Resolved]
  - Dyspepsia [Recovered/Resolved]
  - Hypophagia [Recovered/Resolved]
  - Neuropathy peripheral [Recovered/Resolved]
  - Fibromyalgia [Not Recovered/Not Resolved]
  - Irritable bowel syndrome [Not Recovered/Not Resolved]
  - Abdominal pain upper [Recovered/Resolved]
  - Faeces pale [Recovered/Resolved]
  - Hepatic enzyme decreased [Unknown]
  - Drug ineffective [Not Recovered/Not Resolved]
